FAERS Safety Report 19744192 (Version 1)
Quarter: 2021Q3

REPORT INFORMATION
  Report Type: Spontaneous
  Country: US (occurrence: US)
  Receive Date: 20210823
  Receipt Date: 20210823
  Transmission Date: 20211014
  Serious: No
  Sender: FDA-Public Use
  Company Number: None

PATIENT

DRUGS (2)
  1. MIRTAZIPINE 7.5MG NDC 57664?510?83 [Suspect]
     Active Substance: MIRTAZAPINE
     Route: 048
  2. MIRTAZIPINE 15MG [Suspect]
     Active Substance: MIRTAZAPINE
     Route: 048

REACTIONS (1)
  - Product dispensing error [None]
